FAERS Safety Report 19312985 (Version 1)
Quarter: 2021Q2

REPORT INFORMATION
  Report Type: Spontaneous
  Country: US (occurrence: US)
  Receive Date: 20210526
  Receipt Date: 20210526
  Transmission Date: 20210717
  Serious: Yes (Disabling, Other)
  Sender: FDA-Public Use
  Company Number: None

PATIENT
  Age: 41 Year
  Sex: Female
  Weight: 90 kg

DRUGS (1)
  1. NP THYROID [Suspect]
     Active Substance: LEVOTHYROXINE\LIOTHYRONINE
     Indication: HYPOTHYROIDISM
     Dosage: ?          QUANTITY:90 TABLET(S);?
     Route: 048

REACTIONS (14)
  - Anxiety [None]
  - Depression [None]
  - Fatigue [None]
  - Recalled product administered [None]
  - Alopecia [None]
  - Dry skin [None]
  - Wound [None]
  - Swelling face [None]
  - Loss of personal independence in daily activities [None]
  - Weight increased [None]
  - Neuropathy peripheral [None]
  - Arthralgia [None]
  - Myalgia [None]
  - Impaired work ability [None]

NARRATIVE: CASE EVENT DATE: 20200708
